FAERS Safety Report 9839297 (Version 2)
Quarter: 2014Q1

REPORT INFORMATION
  Report Type: Spontaneous
  Country: BR (occurrence: BR)
  Receive Date: 20140123
  Receipt Date: 20140331
  Transmission Date: 20141002
  Serious: Yes (Other)
  Sender: FDA-Public Use
  Company Number: PHHY2014BR006764

PATIENT
  Age: 51 Year
  Sex: Female
  Weight: 80 kg

DRUGS (4)
  1. VOLTAREN [Suspect]
     Indication: HEADACHE
     Dosage: (ONLY WHEN EXPERIENCED PAIN)
     Route: 065
  2. VOLTAREN [Suspect]
     Indication: OFF LABEL USE
  3. VOLTAREN [Suspect]
     Indication: HEADACHE
     Dosage: (ONLY WHEN EXPERIENCED PAIN)
     Route: 054
  4. VOLTAREN [Suspect]
     Indication: OFF LABEL USE

REACTIONS (7)
  - Diabetes mellitus [Not Recovered/Not Resolved]
  - Hyperglycaemia [Not Recovered/Not Resolved]
  - Injection site necrosis [Recovered/Resolved]
  - Blood cholesterol increased [Recovering/Resolving]
  - Menopause [Recovering/Resolving]
  - Hypertension [Recovering/Resolving]
  - Wrong technique in drug usage process [Unknown]
